FAERS Safety Report 16958397 (Version 1)
Quarter: 2019Q4

REPORT INFORMATION
  Report Type: Spontaneous
  Country: GB (occurrence: GB)
  Receive Date: 20191024
  Receipt Date: 20191024
  Transmission Date: 20200122
  Serious: Yes (Other)
  Sender: FDA-Public Use
  Company Number: GB-BAUSCH-BL-2019-058582

PATIENT
  Age: 77 Year
  Sex: Female
  Weight: 40.15 kg

DRUGS (1)
  1. PREDNISOLONE. [Suspect]
     Active Substance: PREDNISOLONE
     Indication: INFECTIVE EXACERBATION OF CHRONIC OBSTRUCTIVE AIRWAYS DISEASE
     Dosage: PATIENT WAS ON REDUCING DOSE PRIOR TO HOSPITAL ADMISSION - SHORT COURSE PRESCRIBED ON ADMISSION
     Route: 048
     Dates: start: 20190916

REACTIONS (2)
  - Vision blurred [Not Recovered/Not Resolved]
  - Headache [Unknown]

NARRATIVE: CASE EVENT DATE: 20190916
